FAERS Safety Report 4373765-5 (Version None)
Quarter: 2004Q2

REPORT INFORMATION
  Report Type: 
  Country: None (occurrence: None)
  Receive Date: 20040603
  Receipt Date: 20040519
  Transmission Date: 20050107
  Serious: Yes (Hospitalization)
  Sender: FDA-Public Use
  Company Number: K200400749

PATIENT
  Age: 80 Year
  Sex: Male

DRUGS (2)
  1. ALTACE [Suspect]
     Indication: PROPHYLAXIS
     Dosage: ORAL
     Route: 048
     Dates: start: 20030512, end: 20040319
  2. MICARDIS [Suspect]
     Indication: PROPHYLAXIS
     Dosage: ORAL
     Route: 048
     Dates: start: 20030512, end: 20040319

REACTIONS (5)
  - ASTHENIA [None]
  - BEDRIDDEN [None]
  - CONDITION AGGRAVATED [None]
  - DEHYDRATION [None]
  - FATIGUE [None]
